FAERS Safety Report 5763409-X (Version None)
Quarter: 2008Q2

REPORT INFORMATION
  Report Type: 
  Country: None (occurrence: None)
  Receive Date: 20080604
  Receipt Date: 20080604
  Transmission Date: 20081010
  Serious: Yes (Life-Threatening, Hospitalization, Disabling, Other)
  Sender: FDA-Public Use
  Company Number: None

PATIENT
  Age: 39 Year
  Sex: Female
  Weight: 104.7809 kg

DRUGS (2)
  1. SEREVENT [Suspect]
     Indication: ASTHMA
     Dosage: INHALER TWICE A DAY PO
     Route: 048
     Dates: start: 19940101, end: 20010101
  2. ADVAIR DISKUS 100/50 [Suspect]
     Indication: ASTHMA
     Dosage: DISKUS TWICE A DAY PO
     Route: 048
     Dates: start: 20020101, end: 20060101

REACTIONS (5)
  - ASTHMA [None]
  - ATRIAL FIBRILLATION [None]
  - INFLAMMATION [None]
  - LUNG DISORDER [None]
  - PNEUMONIA [None]
